FAERS Safety Report 8896854 (Version 1)
Quarter: 2012Q4

REPORT INFORMATION
  Report Type: 
  Country: US (occurrence: US)
  Receive Date: 20121108
  Receipt Date: 20121108
  Transmission Date: 20130627
  Serious: No
  Sender: FDA-Public Use
  Company Number: US-AMGEN-USASP2012028280

PATIENT
  Age: 66 Year
  Sex: Female

DRUGS (9)
  1. ENBREL [Suspect]
     Indication: RHEUMATOID ARTHRITIS
     Dosage: 50 mg, qwk
     Dates: start: 20120502
  2. ASPIRIN [Concomitant]
     Dosage: UNK
  3. PROMETRIUM                         /00110701/ [Concomitant]
     Dosage: UNK
  4. METHOTREXATE [Concomitant]
     Dosage: UNK
  5. VIVELLE-DOT [Concomitant]
     Dosage: UNK
  6. MELOXICAM [Concomitant]
     Dosage: UNK
  7. FOLIC ACID [Concomitant]
     Dosage: UNK
  8. ORACEA [Concomitant]
     Dosage: UNK
  9. CRESTOR [Concomitant]
     Dosage: UNK

REACTIONS (1)
  - Abdominal distension [Unknown]
